FAERS Safety Report 8543248-7 (Version None)
Quarter: 2012Q3

REPORT INFORMATION
  Report Type: 
  Country: None (occurrence: None)
  Receive Date: 20120716
  Receipt Date: 20120630
  Transmission Date: 20120928
  Serious: Yes (Other)
  Sender: FDA-Public Use
  Company Number: 2012BL003861

PATIENT
  Age: 24 Year
  Sex: Male

DRUGS (2)
  1. BESIVANCE (BESIFLOXACIN OPHTHALMIC SUSPENSION) 0.6%(EYE DROPS, SUSPENS [Suspect]
     Indication: OFF LABEL USE
     Dosage: 3 GTT (1 GTT,3 IN 1 D), OPHTHALMIC
     Route: 047
     Dates: start: 20120524
  2. BESIVANCE (BESIFLOXACIN OPHTHALMIC SUSPENSION) 0.6%(EYE DROPS, SUSPENS [Suspect]
     Indication: POSTOPERATIVE CARE
     Dosage: 3 GTT (1 GTT,3 IN 1 D), OPHTHALMIC
     Route: 047
     Dates: start: 20120524

REACTIONS (2)
  - CORNEAL DISORDER [None]
  - POST PROCEDURAL COMPLICATION [None]
